FAERS Safety Report 18168131 (Version 1)
Quarter: 2020Q3

REPORT INFORMATION
  Report Type: Spontaneous
  Country: CA (occurrence: CA)
  Receive Date: 20200819
  Receipt Date: 20200819
  Transmission Date: 20201103
  Serious: Yes (Other)
  Sender: FDA-Public Use
  Company Number: CA-UNITED THERAPEUTICS-UNT-2020-011925

PATIENT
  Age: 3 Year
  Sex: Male

DRUGS (1)
  1. REMODULIN [Suspect]
     Active Substance: TREPROSTINIL
     Indication: PULMONARY ARTERIAL HYPERTENSION
     Dosage: UNK, INFUSION RATE OF 0.012 ML/HR, CONTINUING
     Route: 058

REACTIONS (7)
  - Infusion site haemorrhage [Recovered/Resolved]
  - Oxygen saturation decreased [Not Recovered/Not Resolved]
  - Device adhesion issue [Unknown]
  - Device issue [Unknown]
  - Infusion site extravasation [Recovered/Resolved]
  - Device infusion issue [Unknown]
  - Off label use of device [Unknown]

NARRATIVE: CASE EVENT DATE: 20200808
